FAERS Safety Report 10065573 (Version 1)
Quarter: 2014Q2

REPORT INFORMATION
  Report Type: Spontaneous
  Country: EG (occurrence: EG)
  Receive Date: 20140408
  Receipt Date: 20140408
  Transmission Date: 20141212
  Serious: Yes (Death)
  Sender: FDA-Public Use
  Company Number: EG-BAYER-2014-051779

PATIENT
  Age: 39 Year
  Sex: Female
  Weight: 111 kg

DRUGS (2)
  1. ULTRAVIST [Suspect]
     Indication: COMPUTERISED TOMOGRAM ABDOMEN
     Dosage: 100 MG, ONCE
     Route: 042
  2. UROGRAFIN [Suspect]
     Indication: COMPUTERISED TOMOGRAM
     Dosage: 40 ML, UNK
     Route: 048

REACTIONS (3)
  - Hypotension [Fatal]
  - Foaming at mouth [None]
  - Pulse absent [Fatal]
